FAERS Safety Report 20844273 (Version 1)
Quarter: 2022Q2

REPORT INFORMATION
  Report Type: Spontaneous
  Country: PL (occurrence: PL)
  Receive Date: 20220518
  Receipt Date: 20220518
  Transmission Date: 20220721
  Serious: Yes (Death)
  Sender: FDA-Public Use
  Company Number: PL-PFIZER INC-202200690501

PATIENT
  Age: 49 Year
  Sex: Male

DRUGS (1)
  1. SUTENT [Suspect]
     Active Substance: SUNITINIB MALATE
     Indication: Pancreatic neuroendocrine tumour
     Dosage: 37.5 MG
     Route: 048
     Dates: start: 20220227, end: 20220415

REACTIONS (16)
  - Hepatic necrosis [Fatal]
  - Circulatory collapse [Fatal]
  - Infarction [Fatal]
  - Dizziness [Unknown]
  - Abdominal pain [Unknown]
  - Vomiting [Unknown]
  - Diarrhoea [Unknown]
  - Decreased appetite [Unknown]
  - Fatigue [Unknown]
  - Blood test abnormal [Unknown]
  - Faeces discoloured [Unknown]
  - Yellow skin [Unknown]
  - Dehydration [Unknown]
  - Weight decreased [Unknown]
  - Blood sodium increased [Unknown]
  - Hyperhidrosis [Unknown]
